FAERS Safety Report 7936566 (Version 2)
Quarter: 2013Q3

REPORT INFORMATION
  Report Type: Report from Study
  Country: US (occurrence: US)
  Receive Date: 20110509
  Receipt Date: 20130930
  Transmission Date: 20140515
  Serious: Yes (Hospitalization)
  Sender: FDA-Public Use
  Company Number: US-ALEXION-A201001464

PATIENT
  Age: 16 Year
  Sex: Female

DRUGS (7)
  1. SOLIRIS [Suspect]
     Indication: PAROXYSMAL NOCTURNAL HAEMOGLOBINURIA
     Dosage: 600 MG, QW
     Route: 042
     Dates: start: 20100416, end: 201006
  2. SOLIRIS [Suspect]
     Indication: OFF LABEL USE
     Dosage: 900 MG, Q2W
     Route: 042
     Dates: start: 201006
  3. COUMADIN                           /00014802/ [Concomitant]
     Indication: ANTICOAGULANT THERAPY
     Dosage: UNK
  4. LITHIUM [Concomitant]
     Indication: BIPOLAR DISORDER
     Dosage: UNK
  5. ZOLOFT                             /01011401/ [Concomitant]
     Indication: BIPOLAR DISORDER
     Dosage: UNK
  6. VITAMIN B12                        /00056201/ [Concomitant]
     Dosage: UNK
  7. MULTIVITAMIN                       /00831701/ [Concomitant]
     Dosage: UNK

REACTIONS (7)
  - Headache [Recovered/Resolved]
  - Pyrexia [Recovered/Resolved]
  - Pain [Recovered/Resolved]
  - Nausea [Recovered/Resolved]
  - Vomiting [Recovered/Resolved]
  - International normalised ratio increased [Recovered/Resolved]
  - Haematocrit decreased [Unknown]
